FAERS Safety Report 16510295 (Version 1)
Quarter: 2019Q3

REPORT INFORMATION
  Report Type: Spontaneous
  Country: GB (occurrence: GB)
  Receive Date: 20190702
  Receipt Date: 20190702
  Transmission Date: 20191004
  Serious: Yes (Other)
  Sender: FDA-Public Use
  Company Number: GB-SA-2019SA175537

PATIENT
  Sex: Male

DRUGS (1)
  1. DUPIXENT [Suspect]
     Active Substance: DUPILUMAB
     Dosage: UNK, UNK
     Route: 065

REACTIONS (4)
  - Unevaluable event [Unknown]
  - Dyspnoea [Unknown]
  - Oedema peripheral [Unknown]
  - Atrial fibrillation [Unknown]
